FAERS Safety Report 4672488-2 (Version None)
Quarter: 2005Q2

REPORT INFORMATION
  Report Type: 
  Country: None (occurrence: None)
  Receive Date: 20050524
  Receipt Date: 20050512
  Transmission Date: 20051028
  Serious: Yes (Hospitalization)
  Sender: FDA-Public Use
  Company Number: 200511244EU

PATIENT
  Age: 65 Year
  Sex: Male

DRUGS (18)
  1. LASIX [Suspect]
     Indication: ESSENTIAL HYPERTENSION
     Route: 048
     Dates: end: 20050228
  2. FLAGYL [Suspect]
     Indication: OPEN WOUND
     Route: 048
     Dates: start: 20050216, end: 20050226
  3. ZURCAL [Suspect]
     Route: 048
     Dates: end: 20050228
  4. ACETAMINOPHEN [Suspect]
     Dates: start: 20050216, end: 20050228
  5. CIPROXIN [Suspect]
     Indication: OPEN WOUND
     Route: 048
     Dates: start: 20050216, end: 20050217
  6. DIPIPERON [Suspect]
     Dates: start: 20050221, end: 20050228
  7. CIPROFLOXACIN [Suspect]
     Indication: OPEN WOUND
     Route: 048
     Dates: start: 20050218, end: 20050226
  8. CETIRIZINE HCL [Suspect]
     Route: 048
     Dates: start: 20050218, end: 20050228
  9. FENISTIL [Suspect]
     Route: 048
     Dates: start: 20050221, end: 20050228
  10. PASPERTIN [Suspect]
     Route: 048
     Dates: start: 20050221, end: 20050228
  11. TRAMAL TROPFEN [Suspect]
     Route: 048
     Dates: start: 20050217, end: 20050223
  12. FRAXIPARIN [Suspect]
     Route: 058
     Dates: end: 20050221
  13. AVANDIA [Suspect]
     Indication: DIABETES MELLITUS NON-INSULIN-DEPENDENT
     Route: 048
  14. EUTHYROX [Concomitant]
     Indication: HYPOTHYROIDISM
     Route: 048
  15. MAGNESIOCARD [Concomitant]
     Route: 048
  16. TORSEMIDE [Concomitant]
     Indication: ESSENTIAL HYPERTENSION
     Route: 048
  17. NOCTAMID [Concomitant]
     Route: 048
  18. GLUCOPHAGE [Concomitant]
     Indication: DIABETES MELLITUS NON-INSULIN-DEPENDENT
     Route: 048

REACTIONS (3)
  - CHOLESTASIS [None]
  - HEPATITIS CHOLESTATIC [None]
  - JAUNDICE [None]
